FAERS Safety Report 12167467 (Version 1)
Quarter: 2016Q1

REPORT INFORMATION
  Report Type: Spontaneous
  Country: US (occurrence: None)
  Receive Date: 20160309
  Receipt Date: 20160309
  Transmission Date: 20160526
  Serious: No
  Sender: FDA-Public Use
  Company Number: None

PATIENT
  Age: 62 Year
  Sex: Female
  Weight: 50.8 kg

DRUGS (4)
  1. ESTRACE [Concomitant]
     Active Substance: ESTRADIOL
  2. ESTRADIOL TRANSDERMAL SYSTEM [Suspect]
     Active Substance: ESTRADIOL
     Indication: MENOPAUSE
     Dosage: .05 MG/DAY TWICE-WEEKLY APPLIED TO A SURFACE, USUALLY THE SKIN
     Route: 062
  3. VITAMINS [Concomitant]
     Active Substance: VITAMINS
  4. PROGESTERONE. [Concomitant]
     Active Substance: PROGESTERONE

REACTIONS (5)
  - Migraine [None]
  - Application site rash [None]
  - Device issue [None]
  - Application site irritation [None]
  - Product substitution issue [None]
